FAERS Safety Report 7483341-3 (Version None)
Quarter: 2011Q2

REPORT INFORMATION
  Report Type: 
  Country: None (occurrence: None)
  Receive Date: 20110517
  Receipt Date: 20110412
  Transmission Date: 20111010
  Serious: Yes (Other)
  Sender: FDA-Public Use
  Company Number: US-BAYER-201039796NA

PATIENT
  Sex: Female

DRUGS (12)
  1. IMODIUM [Concomitant]
     Dosage: UNK UNK, PRN
  2. VITAMINS NOS [Concomitant]
  3. TUMS [CALCIUM CARBONATE] [Concomitant]
  4. YASMIN [Suspect]
     Indication: PRODUCT USED FOR UNKNOWN INDICATION
     Dates: start: 20050601
  5. ACETAMINOPHEN [Concomitant]
     Dosage: UNK UNK, PRN
  6. MYLANTA [Concomitant]
     Dosage: UNK UNK, PRN
  7. HYOSCYAMINE [Concomitant]
     Indication: IRRITABLE BOWEL SYNDROME
     Dosage: UNK UNK, PRN
  8. CLARITIN [Concomitant]
     Dosage: UNK UNK, PRN
  9. IBUPROFEN [Concomitant]
     Dosage: UNK UNK, PRN
  10. MILK OF MAGNESIA TAB [Concomitant]
     Dosage: UNK UNK, PRN
  11. ZOFRAN [Concomitant]
     Dosage: UNK UNK, PRN
  12. YAZ [Suspect]
     Indication: PRODUCT USED FOR UNKNOWN INDICATION
     Dates: start: 20050601

REACTIONS (4)
  - NAUSEA [None]
  - CHOLELITHIASIS [None]
  - ABDOMINAL DISTENSION [None]
  - ABDOMINAL PAIN [None]
